FAERS Safety Report 5159401-9 (Version None)
Quarter: 2006Q4

REPORT INFORMATION
  Report Type: 
  Country: None (occurrence: None)
  Receive Date: 20060918
  Receipt Date: 20060728
  Transmission Date: 20070319
  Serious: Yes (Other)
  Sender: FDA-Public Use
  Company Number: US-JNJFOC-20060800514

PATIENT
  Age: 17 Year
  Sex: Female
  Weight: 53.0709 kg

DRUGS (2)
  1. ORTHO EVRA [Suspect]
     Indication: DYSMENORRHOEA
  2. ORTHO EVRA [Suspect]
     Indication: MENSTRUATION IRREGULAR

REACTIONS (1)
  - DEEP VEIN THROMBOSIS [None]
